FAERS Safety Report 5248566-6 (Version None)
Quarter: 2007Q1

REPORT INFORMATION
  Report Type: 
  Country: None (occurrence: None)
  Receive Date: 20070227
  Receipt Date: 20070216
  Transmission Date: 20070707
  Serious: Yes (Other)
  Sender: FDA-Public Use
  Company Number: FR-PFIZER INC-2007013736

PATIENT
  Sex: Female

DRUGS (1)
  1. SULFASALAZINE [Suspect]

REACTIONS (3)
  - HYPERHIDROSIS [None]
  - POLYDIPSIA [None]
  - POLYURIA [None]
